FAERS Safety Report 7295975-X (Version None)
Quarter: 2011Q1

REPORT INFORMATION
  Report Type: 
  Country: None (occurrence: None)
  Receive Date: 20110216
  Receipt Date: 20110117
  Transmission Date: 20110831
  Serious: No
  Sender: FDA-Public Use
  Company Number: US-ABBOTT-10P-163-0679256-00

PATIENT
  Sex: Male
  Weight: 96.702 kg

DRUGS (3)
  1. SIMCOR [Suspect]
     Dosage: 1000/20
     Dates: start: 20100701
  2. SIMCOR [Suspect]
     Indication: HIGH DENSITY LIPOPROTEIN DECREASED
     Dosage: 500/20
     Dates: start: 20081101, end: 20090101
  3. SIMCOR [Suspect]
     Indication: LOW DENSITY LIPOPROTEIN INCREASED
     Dosage: 1000/20MG
     Dates: start: 20090101, end: 20091101

REACTIONS (15)
  - GASTROOESOPHAGEAL REFLUX DISEASE [None]
  - FLUSHING [None]
  - PRODUCT ODOUR ABNORMAL [None]
  - PALPITATIONS [None]
  - DIZZINESS [None]
  - BASEDOW'S DISEASE [None]
  - THYROID DISORDER [None]
  - FEELING JITTERY [None]
  - ERECTILE DYSFUNCTION [None]
  - DYSPEPSIA [None]
  - CARDIAC FLUTTER [None]
  - SEXUAL DYSFUNCTION [None]
  - TREMOR [None]
  - PRODUCT TASTE ABNORMAL [None]
  - GASTROINTESTINAL DISORDER [None]
